FAERS Safety Report 7234291-9 (Version None)
Quarter: 2011Q1

REPORT INFORMATION
  Report Type: 
  Country: None (occurrence: None)
  Receive Date: 20110119
  Receipt Date: 20110110
  Transmission Date: 20110831
  Serious: Yes (Other)
  Sender: FDA-Public Use
  Company Number: CA-ROCHE-752436

PATIENT
  Age: 65 Year
  Sex: Female

DRUGS (6)
  1. BEVACIZUMAB [Suspect]
     Route: 065
  2. LEUCOVORIN [Concomitant]
     Route: 065
  3. OXALIPLATIN [Suspect]
     Dosage: A PART OF FOLFOX
     Route: 065
  4. IRINOTECAN [Suspect]
     Dosage: DOSE REDUCTION
     Route: 065
  5. FLUOROURACIL [Concomitant]
     Route: 065
  6. IRINOTECAN [Suspect]
     Dosage: A PART OF FOLFIRI
     Route: 065

REACTIONS (3)
  - BONE MARROW FAILURE [None]
  - NEUROPATHY PERIPHERAL [None]
  - HYPERTENSION [None]
